FAERS Safety Report 7644323-1 (Version None)
Quarter: 2011Q3

REPORT INFORMATION
  Report Type: 
  Country: None (occurrence: None)
  Receive Date: 20110728
  Receipt Date: 20110728
  Transmission Date: 20111222
  Serious: Yes (Life-Threatening, Other)
  Sender: FDA-Public Use
  Company Number: None

PATIENT
  Age: 54 Year
  Sex: Male
  Weight: 84.8226 kg

DRUGS (1)
  1. PROZAC [Suspect]
     Indication: SEASONAL AFFECTIVE DISORDER
     Dosage: EVERY DAY
     Dates: start: 20101221

REACTIONS (3)
  - INSOMNIA [None]
  - IMPAIRED WORK ABILITY [None]
  - ALCOHOL USE [None]
